FAERS Safety Report 8508243-2 (Version None)
Quarter: 2012Q3

REPORT INFORMATION
  Report Type: 
  Country: None (occurrence: None)
  Receive Date: 20120713
  Receipt Date: 20120703
  Transmission Date: 20120928
  Serious: Yes (Hospitalization)
  Sender: FDA-Public Use
  Company Number: DE-BRISTOL-MYERS SQUIBB COMPANY-16709586

PATIENT
  Age: 53 Year
  Sex: Female
  Weight: 52 kg

DRUGS (4)
  1. CETUXIMAB [Suspect]
     Indication: NON-SMALL CELL LUNG CANCER
     Dosage: RECENT DOSE:11JUN12, INTER:18JUN12,RESTARTED ON 2JUL12
     Route: 042
     Dates: start: 20120611
  2. GEMCITABINE [Suspect]
     Indication: NON-SMALL CELL LUNG CANCER
     Dosage: DAY 1 AND DAY 8 OF EACH 3-WEEK CYCLE RECENT DOSE:11JUN12, INTER:18JUN12, RESTARTED ON 2JUL12
     Route: 042
     Dates: start: 20120611
  3. CILENGITIDE [Suspect]
     Indication: NON-SMALL CELL LUNG CANCER
     Dosage: INTERRUPTED:18JUN12,RESTARTED ON 2JUL12
     Route: 042
     Dates: start: 20120611
  4. CISPLATIN [Suspect]
     Indication: NON-SMALL CELL LUNG CANCER
     Dosage: RECENT DOSE:12JUN12, INTER:18JUN12.RESTARTED ON 2JUL12
     Route: 042
     Dates: start: 20120612

REACTIONS (1)
  - PERIPHERAL EMBOLISM [None]
